FAERS Safety Report 23299120 (Version 1)
Quarter: 2023Q4

REPORT INFORMATION
  Report Type: Spontaneous
  Country: US (occurrence: US)
  Receive Date: 20231215
  Receipt Date: 20231215
  Transmission Date: 20240109
  Serious: No
  Sender: FDA-Public Use
  Company Number: ENDB23-03844

PATIENT
  Age: 57 Year
  Sex: Male

DRUGS (1)
  1. TESTIM [Suspect]
     Active Substance: TESTOSTERONE
     Indication: Blood testosterone decreased
     Dosage: 50 MILLIGRAM, UNKNOWN (APPLY TO BOTH SHOULDERS AT NIGHT)
     Route: 061
     Dates: start: 20230929, end: 20231003

REACTIONS (2)
  - Application site rash [Recovering/Resolving]
  - Blister [Unknown]

NARRATIVE: CASE EVENT DATE: 20231001
